FAERS Safety Report 10481949 (Version 1)
Quarter: 2014Q3

REPORT INFORMATION
  Report Type: Spontaneous
  Country: DE (occurrence: DE)
  Receive Date: 20140929
  Receipt Date: 20140929
  Transmission Date: 20150326
  Serious: Yes (Hospitalization, Other)
  Sender: FDA-Public Use
  Company Number: GXKR2014DE003634

PATIENT
  Sex: Male

DRUGS (1)
  1. ENALAPRIL 1A PHARMA [Suspect]
     Active Substance: ENALAPRIL
     Dosage: 2.5 MG, QD
     Route: 048
     Dates: start: 201304, end: 201409

REACTIONS (5)
  - Age-related macular degeneration [Unknown]
  - Vision blurred [Recovered/Resolved]
  - Depression [Recovered/Resolved]
  - Visual impairment [Recovered/Resolved]
  - Impaired driving ability [Recovered/Resolved]

NARRATIVE: CASE EVENT DATE: 2013
